FAERS Safety Report 4483468-4 (Version None)
Quarter: 2004Q4

REPORT INFORMATION
  Report Type: 
  Country: None (occurrence: None)
  Receive Date: 20041020
  Receipt Date: 20041005
  Transmission Date: 20050328
  Serious: Yes (Disabling)
  Sender: FDA-Public Use
  Company Number: DSA_81007_2004

PATIENT
  Age: 56 Year
  Sex: Male

DRUGS (17)
  1. XYREM [Suspect]
     Indication: NARCOLEPSY
     Dosage: 7.5 G NIGHTLY PO
     Route: 048
     Dates: start: 20040216, end: 20040514
  2. XYREM [Suspect]
     Indication: NARCOLEPSY
     Dosage: 6 G NIGHTLY PO
     Route: 048
     Dates: start: 20040112, end: 20040216
  3. REQUIP [Suspect]
     Indication: MOVEMENT DISORDER
     Dosage: 0.75 MG QHS PO
     Route: 048
     Dates: start: 20040315, end: 20040430
  4. REQUIP [Suspect]
     Indication: RESTLESS LEGS SYNDROME
     Dosage: 0.75 MG QHS PO
     Route: 048
     Dates: start: 20040315, end: 20040430
  5. XYREM [Suspect]
     Indication: NARCOLEPSY
     Dosage: 9 G NIGHTLY PO
     Route: 048
     Dates: start: 20040514, end: 20040604
  6. REQUIP [Suspect]
     Indication: MOVEMENT DISORDER
     Dosage: 1 MG QHS PO
     Route: 048
     Dates: start: 20040430, end: 20040601
  7. REQUIP [Suspect]
     Indication: RESTLESS LEGS SYNDROME
     Dosage: 1 MG QHS PO
     Route: 048
     Dates: start: 20040430, end: 20040601
  8. REQUIP [Suspect]
     Indication: MOVEMENT DISORDER
     Dosage: 0.5 MG QHS PO
     Route: 048
     Dates: start: 20040308, end: 20040315
  9. REQUIP [Suspect]
     Indication: RESTLESS LEGS SYNDROME
     Dosage: 0.5 MG QHS PO
     Route: 048
     Dates: start: 20040308, end: 20040315
  10. REQUIP [Suspect]
     Indication: MOVEMENT DISORDER
     Dosage: 0.25 MG QHS PO
     Route: 048
     Dates: start: 20040216, end: 20040308
  11. REQUIP [Suspect]
     Indication: RESTLESS LEGS SYNDROME
     Dosage: 0.25 MG QHS PO
     Route: 048
     Dates: start: 20040216, end: 20040308
  12. XYREM [Suspect]
     Indication: NARCOLEPSY
     Dosage: 4.5 G NIGHTLY PO
     Route: 048
     Dates: start: 20031201, end: 20040112
  13. PROVIGIL [Concomitant]
  14. MULTI-VITAMIN [Concomitant]
  15. VITAMIN E [Concomitant]
  16. STOOL SOFTNER [Concomitant]
  17. MEGA OIL [Concomitant]

REACTIONS (9)
  - ABNORMAL SLEEP-RELATED EVENT [None]
  - ACTIVITIES OF DAILY LIVING IMPAIRED [None]
  - CATAPLEXY [None]
  - CONDITION AGGRAVATED [None]
  - DISEASE PROGRESSION [None]
  - IMPAIRED DRIVING ABILITY [None]
  - LACRIMATION INCREASED [None]
  - NASAL DISORDER [None]
  - NEUROPATHY PERIPHERAL [None]
